FAERS Safety Report 8978841 (Version 1)
Quarter: 2012Q4

REPORT INFORMATION
  Report Type: Report from Study
  Country: GB (occurrence: GB)
  Receive Date: 20121221
  Receipt Date: 20121221
  Transmission Date: 20130627
  Serious: Yes (Other)
  Sender: FDA-Public Use
  Company Number: GB-AMGEN-GBRCT2012082069

PATIENT
  Age: 56 Year
  Sex: Male
  Weight: 62 kg

DRUGS (9)
  1. ETANERCEPT [Suspect]
     Indication: PRODUCT USED FOR UNKNOWN INDICATION
     Dosage: 50 mg, 2x/week
     Dates: start: 20120416
  2. CLONAZEPAM [Concomitant]
     Dosage: UNK
     Dates: start: 20060410
  3. PROPANOLOL                         /00030001/ [Concomitant]
     Dosage: UNK
     Dates: start: 20060410
  4. RISPERIDONE [Concomitant]
     Dosage: UNK
     Dates: start: 20060510
  5. FOLIC ACID [Concomitant]
     Dosage: UNK
     Dates: start: 20110128
  6. ZOPICLONE [Concomitant]
     Dosage: UNK
     Dates: start: 20060330
  7. ESCITALOPRAM [Concomitant]
     Dosage: UNK
     Dates: start: 20060210
  8. PROCYCLIDINE [Concomitant]
     Dosage: UNK
     Dates: start: 20061010
  9. CALCICHEW-D3 [Concomitant]
     Dosage: UNK
     Dates: start: 20120313

REACTIONS (2)
  - Influenza like illness [Not Recovered/Not Resolved]
  - Psoriasis [Not Recovered/Not Resolved]
